FAERS Safety Report 7909677 (Version 2)
Quarter: 2012Q4

REPORT INFORMATION
  Report Type: 
  Country: US (occurrence: US)
  Receive Date: 20110421
  Receipt Date: 20121221
  Transmission Date: 20130627
  Serious: No
  Sender: FDA-Public Use
  Company Number: US-ASTRAZENECA-2011SE04414

PATIENT
  Age: 71 Year
  Sex: Female

DRUGS (2)
  1. TOPROL XL [Suspect]
     Route: 048
  2. CRESTOR [Suspect]
     Route: 048

REACTIONS (5)
  - Bronchitis [Unknown]
  - Sinusitis [Unknown]
  - Malaise [Unknown]
  - Asthma [Unknown]
  - Liver function test abnormal [Unknown]
